FAERS Safety Report 6169196-8 (Version None)
Quarter: 2009Q2

REPORT INFORMATION
  Report Type: 
  Country: None (occurrence: None)
  Receive Date: 20090424
  Receipt Date: 20081125
  Transmission Date: 20091009
  Serious: No
  Sender: FDA-Public Use
  Company Number: SPV1-2008-02474

PATIENT
  Age: 12 Year
  Sex: Male
  Weight: 26.3 kg

DRUGS (2)
  1. VYVANSE [Suspect]
     Indication: ATTENTION DEFICIT/HYPERACTIVITY DISORDER
     Dosage: 30 MG, 1X/DAY QD, ORAL; 50 MG, 1X/DAY QD, ORAL/
     Route: 048
     Dates: start: 20081006, end: 20081023
  2. VYVANSE [Suspect]
     Indication: ATTENTION DEFICIT/HYPERACTIVITY DISORDER
     Dosage: 30 MG, 1X/DAY QD, ORAL; 50 MG, 1X/DAY QD, ORAL/
     Route: 048
     Dates: start: 20081024, end: 20081107

REACTIONS (11)
  - ABNORMAL BEHAVIOUR [None]
  - AFFECT LABILITY [None]
  - DEPRESSED MOOD [None]
  - DRUG EFFECT INCREASED [None]
  - DRUG INEFFECTIVE [None]
  - HYPOAESTHESIA [None]
  - HYPOTENSION [None]
  - MIGRAINE [None]
  - NEGATIVISM [None]
  - PARANOIA [None]
  - TIC [None]
